FAERS Safety Report 8292078-2 (Version None)
Quarter: 2012Q2

REPORT INFORMATION
  Report Type: 
  Country: None (occurrence: None)
  Receive Date: 20120417
  Receipt Date: 20120206
  Transmission Date: 20120825
  Serious: No
  Sender: FDA-Public Use
  Company Number: US-ASTRAZENECA-2012SE07137

PATIENT
  Age: 61 Year
  Sex: Male
  Weight: 72.6 kg

DRUGS (5)
  1. NEXIUM [Suspect]
     Route: 048
  2. NEXIUM [Suspect]
     Route: 048
  3. NEXIUM [Suspect]
     Indication: HERNIA
     Dosage: QD
     Route: 048
  4. NEXIUM [Suspect]
     Indication: GASTRITIS
     Dosage: QD
     Route: 048
  5. ZANTAC [Suspect]

REACTIONS (11)
  - CONDITION AGGRAVATED [None]
  - EROSIVE OESOPHAGITIS [None]
  - DYSPEPSIA [None]
  - HEADACHE [None]
  - DIARRHOEA [None]
  - ABDOMINAL PAIN UPPER [None]
  - CHEST PAIN [None]
  - DRUG DOSE OMISSION [None]
  - GASTRIC DISORDER [None]
  - HEPATIC STEATOSIS [None]
  - OFF LABEL USE [None]
